FAERS Safety Report 8964990 (Version 3)
Quarter: 2013Q1

REPORT INFORMATION
  Report Type: Report from Study
  Country: DE (occurrence: DE)
  Receive Date: 20121213
  Receipt Date: 20130121
  Transmission Date: 20140127
  Serious: Yes (Death, Life-Threatening, Hospitalization)
  Sender: FDA-Public Use
  Company Number: DE-BRISTOL-MYERS SQUIBB COMPANY-17172669

PATIENT
  Age: 47 Year
  Sex: Male
  Weight: 95 kg

DRUGS (10)
  1. ERBITUX SOLN FOR INF [Suspect]
     Indication: COLORECTAL CANCER METASTATIC
     Dosage: 11OCT11: 400MG/M2, 25OCT-SEP12:500MG/M2?RECENT DOSE:05SEP2012.
     Route: 042
     Dates: start: 20111011, end: 201209
  2. 5-FLUOROURACIL [Concomitant]
     Indication: COLORECTAL CANCER METASTATIC
     Route: 042
     Dates: start: 20111011, end: 20120514
  3. IRINOTECAN [Concomitant]
     Indication: COLORECTAL CANCER METASTATIC
     Route: 042
     Dates: start: 20111011, end: 20120207
  4. FOLINIC ACID [Concomitant]
     Indication: COLORECTAL CANCER METASTATIC
     Route: 042
     Dates: start: 20111011, end: 20120919
  5. RANITIDINE [Concomitant]
     Indication: PREMEDICATION
     Route: 042
     Dates: start: 20111011, end: 20111011
  6. DIPHENHYDRAMINE [Concomitant]
     Indication: PREMEDICATION
     Route: 048
     Dates: start: 20111011, end: 20111011
  7. ALLOPURINOL [Concomitant]
     Indication: HYPERURICAEMIA
     Dates: start: 20111006, end: 20121105
  8. TOREM [Concomitant]
     Indication: POLYURIA
     Dates: start: 20111006, end: 20121105
  9. PANTOZOL [Concomitant]
     Indication: PROPHYLAXIS
     Dates: start: 20111006, end: 20121105
  10. PREDNISOLONE [Concomitant]

REACTIONS (1)
  - Acute respiratory distress syndrome [Fatal]
